FAERS Safety Report 11887044 (Version 2)
Quarter: 2016Q1

REPORT INFORMATION
  Report Type: Spontaneous
  Country: US (occurrence: US)
  Receive Date: 20160104
  Receipt Date: 20160111
  Transmission Date: 20160526
  Serious: Yes (Hospitalization, Other)
  Sender: FDA-Public Use
  Company Number: US-PFIZER INC-2015468587

PATIENT
  Age: 40 Year
  Sex: Male
  Weight: 94 kg

DRUGS (6)
  1. LANTUS [Concomitant]
     Active Substance: INSULIN GLARGINE
     Dosage: UNK
  2. METOPROLOL. [Concomitant]
     Active Substance: METOPROLOL
     Dosage: UNK
  3. ARIXTRA [Concomitant]
     Active Substance: FONDAPARINUX SODIUM
     Dosage: UNK
  4. SUTENT [Suspect]
     Active Substance: SUNITINIB MALATE
     Indication: METASTATIC RENAL CELL CARCINOMA
     Dosage: 50 MG, CYCLIC (2 WEEKS ON/1 WEEK OFF)
     Dates: start: 20151214
  5. ATIVAN [Concomitant]
     Active Substance: LORAZEPAM
  6. MS CONTIN [Concomitant]
     Active Substance: MORPHINE SULFATE
     Dosage: UNK

REACTIONS (9)
  - Blood glucose decreased [Unknown]
  - Tumour lysis syndrome [Unknown]
  - Ascites [Unknown]
  - Renal vein thrombosis [Unknown]
  - Swelling [Unknown]
  - Blood count abnormal [Unknown]
  - Headache [Unknown]
  - Pain [Unknown]
  - Blood potassium increased [Unknown]
